FAERS Safety Report 21918011 (Version 2)
Quarter: 2023Q1

REPORT INFORMATION
  Report Type: Report from Study
  Country: CA (occurrence: CA)
  Receive Date: 20230127
  Receipt Date: 20230207
  Transmission Date: 20230418
  Serious: Yes (Other)
  Sender: FDA-Public Use
  Company Number: CA-ABBVIE-4284119

PATIENT
  Sex: Female

DRUGS (1)
  1. RINVOQ [Suspect]
     Active Substance: UPADACITINIB
     Indication: Rheumatoid arthritis
     Dosage: STRENGTH 15 MG
     Route: 048
     Dates: start: 20211129

REACTIONS (6)
  - Breast cancer [Unknown]
  - Breast swelling [Unknown]
  - Breast pain [Unknown]
  - Urinary tract infection [Unknown]
  - Musculoskeletal chest pain [Unknown]
  - Pain [Unknown]
